FAERS Safety Report 8791498 (Version 1)
Quarter: 2012Q4

REPORT INFORMATION
  Report Type: Spontaneous
  Country: US (occurrence: None)
  Receive Date: 20120914
  Receipt Date: 20120914
  Transmission Date: 20130627
  Serious: Yes (Life-Threatening, Other)
  Sender: FDA-Public Use
  Company Number: None

PATIENT
  Sex: Female
  Weight: 72.12 kg

DRUGS (3)
  1. SERTRALINE [Suspect]
     Indication: CHRONIC DEPRESSION
     Dosage: 12/2012-09/2012
     Route: 048
     Dates: end: 201209
  2. SERTRALINE [Suspect]
     Indication: SUICIDAL IDEATION
     Dosage: 12/2012-09/2012
     Route: 048
     Dates: end: 201209
  3. SERTRALINE [Suspect]
     Route: 048

REACTIONS (1)
  - Suicidal ideation [None]
